FAERS Safety Report 8533557-X (Version None)
Quarter: 2012Q2

REPORT INFORMATION
  Report Type: 
  Country: None (occurrence: None)
  Receive Date: 20120412
  Receipt Date: 20100728
  Transmission Date: 20120825
  Serious: Yes (Hospitalization)
  Sender: FDA-Public Use
  Company Number: PHHY2010US50454

PATIENT
  Sex: Male

DRUGS (2)
  1. ZIPRASIDONE HYDROCHLORIDE (GEODON) [Suspect]
  2. CLOZARIL [Suspect]

REACTIONS (2)
  - SEDATION [None]
  - CONVULSION [None]
